FAERS Safety Report 9563926 (Version 3)
Quarter: 2013Q4

REPORT INFORMATION
  Report Type: Report from Study
  Country: IT (occurrence: IT)
  Receive Date: 20130928
  Receipt Date: 20131121
  Transmission Date: 20140711
  Serious: Yes (Other)
  Sender: FDA-Public Use
  Company Number: IT-ROCHE-1278383

PATIENT
  Sex: 0

DRUGS (14)
  1. BEVACIZUMAB [Suspect]
     Indication: LUNG ADENOCARCINOMA
     Dosage: 7.5 OR 15 MG/KG ON DAY 1 EVERY 21 DAYS FOR SIX CYCLES, 10 MG/KG, ENDOMETRIAL ADENOCARCINOMA RECEIVED
     Route: 065
  2. BEVACIZUMAB [Suspect]
     Indication: RENAL CANCER
  3. BEVACIZUMAB [Suspect]
     Indication: ENDOMETRIAL ADENOCARCINOMA
  4. BEVACIZUMAB [Suspect]
     Indication: METASTASES TO CENTRAL NERVOUS SYSTEM
  5. INTERFERON ALFA-2A [Suspect]
     Indication: METASTASES TO CENTRAL NERVOUS SYSTEM
     Route: 065
  6. INTERFERON ALFA-2A [Suspect]
     Indication: RENAL CANCER
  7. CISPLATIN [Suspect]
     Indication: LUNG ADENOCARCINOMA
     Dosage: 75 MG/M2 OR 50 MG/M2 ON DAY 1 EVERY 21 DAYS FOR SIX CYCLES.
     Route: 065
  8. CISPLATIN [Suspect]
     Indication: RENAL CANCER
  9. CISPLATIN [Suspect]
     Indication: ENDOMETRIAL ADENOCARCINOMA
  10. CISPLATIN [Suspect]
     Indication: METASTASES TO CENTRAL NERVOUS SYSTEM
  11. GEMCITABINE [Suspect]
     Indication: LUNG ADENOCARCINOMA
     Dosage: ON 1250 MG/M2 OR 1000 MG/M2DAYS 1 AND 8 EVERY 21 DAYS FOR SIX CYCLES
     Route: 065
  12. GEMCITABINE [Suspect]
     Indication: RENAL CANCER
  13. GEMCITABINE [Suspect]
     Indication: ENDOMETRIAL ADENOCARCINOMA
  14. GEMCITABINE [Suspect]
     Indication: METASTASES TO CENTRAL NERVOUS SYSTEM

REACTIONS (9)
  - Asthenia [Unknown]
  - Neutropenia [Unknown]
  - Deep vein thrombosis [Unknown]
  - Pulmonary embolism [Unknown]
  - Thrombocytopenia [Unknown]
  - Gastric perforation [Unknown]
  - Impaired healing [Unknown]
  - Embolism arterial [Unknown]
  - Cerebral ischaemia [Unknown]
